FAERS Safety Report 7867347-8 (Version None)
Quarter: 2011Q4

REPORT INFORMATION
  Report Type: 
  Country: None (occurrence: None)
  Receive Date: 20111028
  Receipt Date: 20111025
  Transmission Date: 20120403
  Serious: Yes (Hospitalization)
  Sender: FDA-Public Use
  Company Number: US-BRISTOL-MYERS SQUIBB COMPANY-16192171

PATIENT
  Age: 82 Year
  Sex: Male
  Weight: 75 kg

DRUGS (1)
  1. IPILIMUMAB [Suspect]
     Indication: MALIGNANT MELANOMA
     Dosage: NO OF COURSES:4; LAST DOSE ON 13SEP2011
     Route: 042
     Dates: start: 20110711

REACTIONS (4)
  - INTERNATIONAL NORMALISED RATIO INCREASED [None]
  - HEPATIC FAILURE [None]
  - ACTIVATED PARTIAL THROMBOPLASTIN TIME PROLONGED [None]
  - RESPIRATORY FAILURE [None]
